FAERS Safety Report 8590992-1 (Version None)
Quarter: 2012Q3

REPORT INFORMATION
  Report Type: 
  Country: None (occurrence: None)
  Receive Date: 20120813
  Receipt Date: 20120807
  Transmission Date: 20120928
  Serious: Yes (Hospitalization, Other)
  Sender: FDA-Public Use
  Company Number: US-009507513-1201USA02841

PATIENT

DRUGS (7)
  1. FOSAMAX [Suspect]
     Indication: OSTEOPOROSIS
     Route: 048
     Dates: start: 19960101, end: 20030801
  2. FOSAMAX [Suspect]
     Route: 048
     Dates: start: 20090314, end: 20100201
  3. HORMONES (UNSPECIFIED) [Concomitant]
     Route: 048
     Dates: start: 19680101
  4. ACTONEL [Suspect]
     Dates: start: 19960101
  5. CALCIUM (UNSPECIFIED) (+) VITAMIN D (UNSPECIFIED) [Concomitant]
     Dosage: UNK UNK, QD
     Route: 048
     Dates: start: 19960101
  6. FOSAMAX [Suspect]
     Dosage: 70 MG, QW
     Route: 048
  7. PREMARIN [Concomitant]
     Dosage: 0.625 MG, QD
     Route: 048
     Dates: start: 19880101

REACTIONS (44)
  - MORTON'S NEUROMA [None]
  - FOOT FRACTURE [None]
  - CARDIAC DISORDER [None]
  - BURSITIS [None]
  - IMPAIRED HEALING [None]
  - PARAESTHESIA [None]
  - FIBROSIS [None]
  - TENOSYNOVITIS [None]
  - BLOOD POTASSIUM DECREASED [None]
  - GAMMA-GLUTAMYLTRANSFERASE INCREASED [None]
  - VITREOUS DETACHMENT [None]
  - OSTEOMA [None]
  - ASTHMA [None]
  - PATELLOFEMORAL PAIN SYNDROME [None]
  - PNEUMONIA [None]
  - HYPERCHOLESTEROLAEMIA [None]
  - DRUG INEFFECTIVE [None]
  - CONTUSION [None]
  - ANGIOEDEMA [None]
  - PROCEDURAL VOMITING [None]
  - HYPERTENSION [None]
  - CYSTITIS [None]
  - URETHRAL SYNDROME [None]
  - ATRIAL FIBRILLATION [None]
  - LUNG DISORDER [None]
  - ACQUIRED CLAW TOE [None]
  - OSTEOARTHRITIS [None]
  - LABYRINTHITIS [None]
  - ROTATOR CUFF SYNDROME [None]
  - CARDIAC MURMUR [None]
  - GASTROOESOPHAGEAL REFLUX DISEASE [None]
  - FEMUR FRACTURE [None]
  - CARPAL TUNNEL SYNDROME [None]
  - TENDONITIS [None]
  - PROCEDURAL NAUSEA [None]
  - BONE DISORDER [None]
  - TRANSFUSION [None]
  - TEMPOROMANDIBULAR JOINT SYNDROME [None]
  - LOW TURNOVER OSTEOPATHY [None]
  - INTERVERTEBRAL DISC DEGENERATION [None]
  - MENIERE'S DISEASE [None]
  - OSTEOPENIA [None]
  - DEAFNESS [None]
  - FOOT DEFORMITY [None]
